FAERS Safety Report 8155557-4 (Version None)
Quarter: 2012Q1

REPORT INFORMATION
  Report Type: 
  Country: None (occurrence: None)
  Receive Date: 20120215
  Receipt Date: 20120208
  Transmission Date: 20120608
  Serious: Yes (Other)
  Sender: FDA-Public Use
  Company Number: GER/GER/12/0022968

PATIENT
  Age: 39 Year
  Sex: Female
  Weight: 94 kg

DRUGS (2)
  1. VENLAFAXINE [Suspect]
     Indication: DEPRESSION
     Dosage: 150 MG, 1 IN 1 D, ORAL
     Route: 048
     Dates: start: 20110501
  2. FOLSAURE RATHIOPHARM (FOLIC ACID) [Concomitant]

REACTIONS (2)
  - ABORTION INDUCED [None]
  - MATERNAL EXPOSURE DURING PREGNANCY [None]
